FAERS Safety Report 25766682 (Version 1)
Quarter: 2025Q3

REPORT INFORMATION
  Report Type: Spontaneous
  Country: CN (occurrence: CN)
  Receive Date: 20250905
  Receipt Date: 20250905
  Transmission Date: 20251020
  Serious: Yes (Other)
  Sender: BRACCO
  Company Number: CN-BRACCO-2025CN06008

PATIENT
  Age: 76 Year
  Sex: Female

DRUGS (1)
  1. IOMERON [Suspect]
     Active Substance: IOMEPROL
     Indication: Computerised tomogram head
     Route: 041
     Dates: start: 20250825, end: 20250825

REACTIONS (3)
  - Oxygen saturation decreased [Recovering/Resolving]
  - Contrast media allergy [Recovering/Resolving]
  - Tremor [Recovering/Resolving]

NARRATIVE: CASE EVENT DATE: 20250825
